FAERS Safety Report 6573455-4 (Version None)
Quarter: 2010Q1

REPORT INFORMATION
  Report Type: 
  Country: None (occurrence: None)
  Receive Date: 20100208
  Receipt Date: 20100129
  Transmission Date: 20100710
  Serious: Yes (Life-Threatening, Other)
  Sender: FDA-Public Use
  Company Number: NP-ASTRAZENECA-2010SE04541

PATIENT
  Age: 64 Year
  Sex: Female
  Weight: 65 kg

DRUGS (15)
  1. ATENOLOL [Suspect]
     Indication: HYPERTENSION
     Route: 048
  2. ATENOLOL [Suspect]
     Route: 048
  3. HALOTHANE [Suspect]
     Indication: ANAESTHESIA
  4. HALOTHANE [Suspect]
  5. HALOTHANE [Suspect]
  6. HALOTHANE [Suspect]
  7. LABETALOL HCL [Suspect]
  8. LABETALOL HCL [Suspect]
     Dosage: TWICE WITHIN NEXT FIVE MINUTES
  9. VECURONIUM BROMIDE [Suspect]
     Indication: ANAESTHESIA
  10. THIOPENTAL SODIUM [Concomitant]
     Indication: ANAESTHESIA
  11. LIDOCAINE [Concomitant]
     Indication: ANAESTHESIA
  12. MEPERIDINE HCL [Concomitant]
     Indication: ANAESTHESIA
  13. DIAZEPAM [Concomitant]
     Dosage: 5 MG TE NIGHT PRIOR TO SURGERY
     Route: 048
  14. DIAZEPAM [Concomitant]
     Dosage: 5 MG ON THE MORNING OF SURGERY
     Route: 048
  15. MIDAZOLAM HCL [Concomitant]
     Route: 042

REACTIONS (8)
  - BLOOD PRESSURE INCREASED [None]
  - CARDIAC ARREST [None]
  - DIASTOLIC DYSFUNCTION [None]
  - DRUG TOXICITY [None]
  - ELECTROCARDIOGRAM T WAVE INVERSION [None]
  - OVERDOSE [None]
  - SINUS ARRHYTHMIA [None]
  - THERAPEUTIC AGENT TOXICITY [None]
